FAERS Safety Report 5257159-6 (Version None)
Quarter: 2007Q1

REPORT INFORMATION
  Report Type: 
  Country: None (occurrence: None)
  Receive Date: 20070307
  Receipt Date: 20070228
  Transmission Date: 20070707
  Serious: Yes (Life-Threatening)
  Sender: FDA-Public Use
  Company Number: DE-ROCHE-484619

PATIENT
  Age: 47 Year
  Sex: Male

DRUGS (4)
  1. ZENAPAX [Suspect]
     Indication: LIVER TRANSPLANT
     Route: 065
     Dates: start: 20061115
  2. MYCOPHENOLATE MOFETIL [Suspect]
     Indication: LIVER TRANSPLANT
     Route: 048
  3. TACROLIMUS [Suspect]
     Indication: LIVER TRANSPLANT
     Route: 048
     Dates: start: 20061115, end: 20070112
  4. TACROLIMUS [Suspect]
     Route: 048
     Dates: start: 20070112

REACTIONS (1)
  - HYPERKALAEMIA [None]
